FAERS Safety Report 4421418-7 (Version None)
Quarter: 2004Q3

REPORT INFORMATION
  Report Type: 
  Country: None (occurrence: None)
  Receive Date: 20040709
  Receipt Date: 20040329
  Transmission Date: 20050211
  Serious: No
  Sender: FDA-Public Use
  Company Number: 2004S1000031

PATIENT
  Age: 45 Year
  Sex: Female
  Weight: 54.5 kg

DRUGS (11)
  1. CUBICIN [Suspect]
     Indication: POSTOPERATIVE INFECTION
     Dosage: IV
     Route: 042
     Dates: start: 20031215, end: 20040105
  2. CUBICIN [Suspect]
     Indication: STAPHYLOCOCCAL INFECTION
     Dosage: IV
     Route: 042
     Dates: start: 20031215, end: 20040105
  3. ZOSYN [Concomitant]
  4. VANCOMYCIN [Concomitant]
  5. OXYCODONE HCL [Concomitant]
  6. ZANTAC [Concomitant]
  7. INSULIN [Concomitant]
  8. MORPHINE [Concomitant]
  9. TYLENOL [Concomitant]
  10. DARVOCET [Concomitant]
  11. CLOTRIMAZOLE TROCHE [Concomitant]

REACTIONS (3)
  - ALANINE AMINOTRANSFERASE INCREASED [None]
  - ASPARTATE AMINOTRANSFERASE INCREASED [None]
  - BLOOD ALKALINE PHOSPHATASE INCREASED [None]
